FAERS Safety Report 5336768-X (Version None)
Quarter: 2007Q2

REPORT INFORMATION
  Report Type: 
  Country: None (occurrence: None)
  Receive Date: 20070529
  Receipt Date: 20070518
  Transmission Date: 20071010
  Serious: Yes (Hospitalization)
  Sender: FDA-Public Use
  Company Number: PHHO2007MX08775

PATIENT
  Age: 57 Year
  Sex: Female

DRUGS (2)
  1. ZELMAC / HTF 919A [Suspect]
     Indication: IRRITABLE BOWEL SYNDROME
     Dosage: 6 MG, BID
     Route: 048
     Dates: start: 20070401
  2. ZELMAC / HTF 919A [Suspect]
     Dosage: 6 MG, QD
     Route: 048

REACTIONS (2)
  - EXOSTOSIS [None]
  - LIMB OPERATION [None]
